FAERS Safety Report 10058021 (Version 1)
Quarter: 2014Q2

REPORT INFORMATION
  Report Type: Spontaneous
  Country: US (occurrence: None)
  Receive Date: 20140403
  Receipt Date: 20140403
  Transmission Date: 20141212
  Serious: Yes (Other)
  Sender: FDA-Public Use
  Company Number: None

PATIENT
  Age: 32 Year
  Sex: Female
  Weight: 58.51 kg

DRUGS (1)
  1. MIRENA [Suspect]

REACTIONS (4)
  - Vaginal haemorrhage [None]
  - Abdominal pain [None]
  - X-ray abnormal [None]
  - Device dislocation [None]
